FAERS Safety Report 5214151-5 (Version None)
Quarter: 2007Q1

REPORT INFORMATION
  Report Type: 
  Country: None (occurrence: None)
  Receive Date: 20070122
  Receipt Date: 20070111
  Transmission Date: 20070707
  Serious: Yes (Other)
  Sender: FDA-Public Use
  Company Number: GB-JNJFOC-20061206025

PATIENT
  Sex: Female

DRUGS (1)
  1. REMICADE [Suspect]
     Indication: CROHN'S DISEASE
     Dosage: 1ST INFUSION 8 WEEKS PRIOR TO REPORTING.
     Route: 042

REACTIONS (3)
  - INFUSION RELATED REACTION [None]
  - MALAISE [None]
  - URTICARIA GENERALISED [None]
